FAERS Safety Report 9981364 (Version 3)
Quarter: 2015Q1

REPORT INFORMATION
  Report Type: Spontaneous
  Country: DE (occurrence: DE)
  Receive Date: 20140307
  Receipt Date: 20150122
  Transmission Date: 20150721
  Serious: Yes (Hospitalization, Other)
  Sender: FDA-Public Use
  Company Number: DE-JNJFOC-20140301280

PATIENT
  Sex: Male

DRUGS (4)
  1. XARELTO [Suspect]
     Active Substance: RIVAROXABAN
     Indication: DEEP VEIN THROMBOSIS
     Route: 048
     Dates: start: 20140201, end: 20140224
  2. XARELTO [Suspect]
     Active Substance: RIVAROXABAN
     Indication: EMBOLISM VENOUS
     Route: 048
     Dates: start: 20140225, end: 20140630
  3. XARELTO [Suspect]
     Active Substance: RIVAROXABAN
     Indication: EMBOLISM VENOUS
     Route: 048
     Dates: start: 20140201, end: 20140224
  4. XARELTO [Suspect]
     Active Substance: RIVAROXABAN
     Indication: DEEP VEIN THROMBOSIS
     Route: 048
     Dates: start: 20140225, end: 20140630

REACTIONS (17)
  - Dysbacteriosis [Unknown]
  - Eye haemorrhage [Unknown]
  - Epistaxis [Recovered/Resolved]
  - Blood urine present [Unknown]
  - Abnormal behaviour [Unknown]
  - Chromaturia [Unknown]
  - Gastric disorder [Not Recovered/Not Resolved]
  - Renal haemorrhage [Recovered/Resolved]
  - Blood pressure increased [Unknown]
  - Limb discomfort [Unknown]
  - Gastrointestinal disorder [Unknown]
  - Asthenia [Unknown]
  - Thrombosis [Unknown]
  - Malaise [Unknown]
  - Haemorrhoids [Unknown]
  - Constipation [Unknown]
  - Blood pressure decreased [Unknown]
